FAERS Safety Report 7546943-1 (Version None)
Quarter: 2011Q2

REPORT INFORMATION
  Report Type: 
  Country: None (occurrence: None)
  Receive Date: 20110607
  Receipt Date: 20110525
  Transmission Date: 20111010
  Serious: Yes (Other)
  Sender: FDA-Public Use
  Company Number: 2011AP001067

PATIENT
  Age: 64 Year
  Sex: Male

DRUGS (35)
  1. ISOPROPYL MYRISTATE (ISOPROPYL MYRISTATE) [Concomitant]
  2. BISACODYL (BISACODYL) [Concomitant]
  3. LANSOPRAZOLE [Concomitant]
  4. ACETYLSALICYLIC ACID (ACETYLSALICYLIC ACID) [Concomitant]
  5. CLOBETASOL PROPIONATE [Concomitant]
  6. PARAFFIN, LIQUID (PARAFFIN, LIQUID) [Concomitant]
  7. SODIUM PIDOLATE (SODIUM PIDOLATE) [Concomitant]
  8. ACETAMINOPHEN [Concomitant]
  9. MENTHA X PIPERITA OIL (MENTHA X PIPERITA OIL) [Concomitant]
  10. TRAMADOL HCL [Concomitant]
  11. SODIUM ALGINATE (SODIUM ALGINATE) [Concomitant]
  12. VENLAFAXINE [Concomitant]
  13. SODIUM LACTATE (SODIUM LACTATE) [Concomitant]
  14. SODIUM PICOSULFATE (SODIUM PICOSULFATE) [Concomitant]
  15. ACHILLEA MILLEFOLIUM (ACHILLEA MILLEFOLIUM) [Concomitant]
  16. PETHIDINE (PETHIDINE) [Concomitant]
  17. ROSUVASTATIN [Concomitant]
  18. CALCIUM CARBONATE [Concomitant]
  19. MAGNESIUM CARBONATE (MAGNESIUM CARBONATE) [Concomitant]
  20. CLOPIDOGREL [Concomitant]
  21. NEBIVOLOL HCL [Concomitant]
  22. DIAZEPAM [Concomitant]
  23. FLUOXETINE [Concomitant]
  24. RAMIPRIL [Suspect]
     Indication: CARDIAC DISORDER
     Dosage: 2.5 MG; QD
  25. BISOPROLOL FUMARATE [Suspect]
     Indication: ACUTE MYOCARDIAL INFARCTION
     Dosage: 2.5 MG; QD PO
     Route: 048
  26. BISOPROLOL FUMARATE [Suspect]
     Indication: MYOCARDIAL ISCHAEMIA
     Dosage: 2.5 MG; QD PO
     Route: 048
  27. CITALOPRAM HYDROBROMIDE [Concomitant]
  28. SIMVASTATIN [Concomitant]
  29. IBUPROFEN [Concomitant]
  30. SODIUM BICARBONATE IN PLASTIC CONTAINER [Concomitant]
  31. PENICILLIN [Concomitant]
  32. CITRIC ACID (CITRIC ACID) [Concomitant]
  33. PROPRANOLOL [Concomitant]
  34. PERINDOPRIL (PERINDOPRIL) [Concomitant]
  35. ARACHIS HYPOGAEA OIL (ARACHIS HYPOGAEA OIL) [Concomitant]

REACTIONS (7)
  - CONDITION AGGRAVATED [None]
  - OSTEOARTHRITIS [None]
  - PSORIASIS [None]
  - GAIT DISTURBANCE [None]
  - JOINT EFFUSION [None]
  - FALL [None]
  - LIGAMENT DISORDER [None]
